FAERS Safety Report 14521043 (Version 1)
Quarter: 2018Q1

REPORT INFORMATION
  Report Type: Spontaneous
  Country: GR (occurrence: GR)
  Receive Date: 20180212
  Receipt Date: 20180212
  Transmission Date: 20180509
  Serious: Yes (Hospitalization)
  Sender: FDA-Public Use
  Company Number: GR-TEVA-2018-GR-855575

PATIENT
  Age: 46 Year
  Sex: Male

DRUGS (2)
  1. PEG-IFN-A 2A [Suspect]
     Active Substance: PEGINTERFERON ALFA-2A
     Indication: CHRONIC HEPATITIS C
     Dosage: 180MICROG, WEEKLY
     Route: 065
  2. RIBAVIRIN. [Suspect]
     Active Substance: RIBAVIRIN
     Indication: CHRONIC HEPATITIS C
     Dosage: 1200 MILLIGRAM DAILY;
     Route: 065

REACTIONS (5)
  - Bone marrow failure [Recovering/Resolving]
  - Aplastic anaemia [Recovering/Resolving]
  - Contusion [Unknown]
  - Haemorrhagic stroke [Recovering/Resolving]
  - Purpura [Unknown]
